FAERS Safety Report 8531350-5 (Version None)
Quarter: 2012Q3

REPORT INFORMATION
  Report Type: 
  Country: None (occurrence: None)
  Receive Date: 20120723
  Receipt Date: 20120711
  Transmission Date: 20120928
  Serious: Yes (Other)
  Sender: FDA-Public Use
  Company Number: US-ACTELION-A-NJ2012-68690

PATIENT

DRUGS (6)
  1. ASPIRIN [Concomitant]
  2. EPOPROSTENOL SODIUM [Suspect]
     Indication: PULMONARY ARTERIAL HYPERTENSION
     Dosage: 38.3 NG/KG, PER MIN
     Route: 041
     Dates: start: 20120418
  3. LETAIRIS [Concomitant]
  4. ZITHROMAX [Suspect]
  5. COUMADIN [Concomitant]
  6. PLAVIX [Concomitant]

REACTIONS (5)
  - FLUSHING [None]
  - PRURITUS [None]
  - HEART RATE ABNORMAL [None]
  - FUNGAL INFECTION [None]
  - PNEUMONIA [None]
